FAERS Safety Report 9558300 (Version 3)
Quarter: 2013Q4

REPORT INFORMATION
  Report Type: Report from Study
  Country: DE (occurrence: DE)
  Receive Date: 20130926
  Receipt Date: 20131008
  Transmission Date: 20140711
  Serious: Yes (Hospitalization)
  Sender: FDA-Public Use
  Company Number: DE-ROCHE-1278823

PATIENT
  Age: 45 Year
  Sex: Male
  Weight: 82.2 kg

DRUGS (7)
  1. RITUXIMAB [Suspect]
     Indication: NON-HODGKIN^S LYMPHOMA
     Route: 042
     Dates: start: 20120813, end: 20130108
  2. RITUXIMAB [Suspect]
     Route: 042
     Dates: start: 20130408, end: 20130715
  3. BENDAMUSTINA [Suspect]
     Indication: NON-HODGKIN^S LYMPHOMA
     Route: 042
     Dates: start: 20120813, end: 20130108
  4. PARACETAMOL [Concomitant]
     Route: 065
     Dates: start: 20130408, end: 20130715
  5. TAVEGIL [Concomitant]
     Route: 042
     Dates: start: 20130408, end: 20130715
  6. DEXAMETHASON [Concomitant]
     Route: 042
     Dates: start: 20120813, end: 20130108
  7. NAVOBAN [Concomitant]
     Route: 065
     Dates: start: 20120813, end: 20130108

REACTIONS (2)
  - Psychomotor retardation [Recovered/Resolved]
  - Personality change [Recovered/Resolved]
